FAERS Safety Report 7033035 (Version 3)
Quarter: 2013Q4

REPORT INFORMATION
  Report Type: Spontaneous
  Country: US (occurrence: US)
  Receive Date: 20090625
  Receipt Date: 20131114
  Transmission Date: 20140711
  Serious: Yes (Other)
  Sender: FDA-Public Use
  Company Number: US-PFIZER INC-2009227988

PATIENT
  Age: 18 Year
  Sex: Female
  Weight: 51 kg

DRUGS (1)
  1. DEPO-PROVERA [Suspect]
     Indication: CONTRACEPTION
     Dosage: 150MG EVERY 11 WEEKS
     Route: 030
     Dates: start: 20071002, end: 20090327

REACTIONS (3)
  - Drug ineffective [Unknown]
  - Unintended pregnancy [Unknown]
  - Abortion spontaneous [Unknown]
